FAERS Safety Report 6828352-3 (Version None)
Quarter: 2010Q3

REPORT INFORMATION
  Report Type: 
  Country: None (occurrence: None)
  Receive Date: 20100708
  Receipt Date: 20100708
  Transmission Date: 20110219
  Serious: Yes (Other)
  Sender: FDA-Public Use
  Company Number: None

PATIENT
  Sex: Female
  Weight: 81.6475 kg

DRUGS (1)
  1. YASMIN [Suspect]
     Indication: PREGNANCY
     Dosage: 1 PILL. 28 TBLET PACKAGE DAILY PO 7 MONTHS TOTAL
     Route: 048
     Dates: start: 20080120, end: 20080731

REACTIONS (1)
  - CHOLECYSTECTOMY [None]
